FAERS Safety Report 21307516 (Version 1)
Quarter: 2022Q3

REPORT INFORMATION
  Report Type: Spontaneous
  Country: ES (occurrence: ES)
  Receive Date: 20220908
  Receipt Date: 20220908
  Transmission Date: 20221026
  Serious: Yes (Death, Life-Threatening, Hospitalization, Other)
  Sender: FDA-Public Use
  Company Number: ES-KRKA-ES2022K09518LIT

PATIENT
  Age: 33 Year
  Sex: Female

DRUGS (1)
  1. DEXAMETHASONE [Suspect]
     Active Substance: DEXAMETHASONE
     Indication: Meningioma
     Dosage: 4 MG, 3X PER DAY, 12 MILLIGRAM, QD
     Route: 065

REACTIONS (6)
  - Infection in an immunocompromised host [Fatal]
  - Septic shock [Fatal]
  - Multiple organ dysfunction syndrome [Fatal]
  - Strongyloidiasis [Fatal]
  - Klebsiella bacteraemia [Fatal]
  - Escherichia bacteraemia [Fatal]
